FAERS Safety Report 7327063-8 (Version None)
Quarter: 2011Q1

REPORT INFORMATION
  Report Type: 
  Country: None (occurrence: None)
  Receive Date: 20110302
  Receipt Date: 20110222
  Transmission Date: 20110831
  Serious: Yes (Hospitalization)
  Sender: FDA-Public Use
  Company Number: US-AMGEN-USASP2011010228

PATIENT
  Age: 80 Year
  Sex: Female

DRUGS (1)
  1. ENBREL [Suspect]
     Indication: RHEUMATOID ARTHRITIS
     Dosage: 50 MG, QWK
     Dates: start: 20000601

REACTIONS (8)
  - SYNCOPE [None]
  - STAPHYLOCOCCAL INFECTION [None]
  - PNEUMONIA [None]
  - DRUG INEFFECTIVE [None]
  - SPINAL COLUMN STENOSIS [None]
  - DECUBITUS ULCER [None]
  - BLOOD CORTISOL DECREASED [None]
  - LOCALISED INFECTION [None]
